FAERS Safety Report 20323832 (Version 2)
Quarter: 2022Q1

REPORT INFORMATION
  Report Type: Report from Study
  Country: FR (occurrence: None)
  Receive Date: 20220111
  Receipt Date: 20220202
  Transmission Date: 20220423
  Serious: Yes (Hospitalization)
  Sender: FDA-Public Use
  Company Number: FR-ROCHE-2995069

PATIENT
  Age: 93 Year
  Sex: Male
  Weight: 49 kg

DRUGS (8)
  1. ENTRECTINIB [Suspect]
     Active Substance: ENTRECTINIB
     Indication: Neoplasm
     Dosage: ON 31/DEC/2021, LAST DOSE PRIOR TO ADVERSE EVENT WAS ADMINISTERED.
     Route: 048
     Dates: start: 20210412
  2. DUTASTERIDE [Concomitant]
     Active Substance: DUTASTERIDE
  3. ALFUZOSIN HYDROCHLORIDE [Concomitant]
     Active Substance: ALFUZOSIN HYDROCHLORIDE
     Dates: start: 2000
  4. INSULIN NOS [Concomitant]
     Active Substance: INSULIN NOS
     Dosage: 15 U
     Dates: start: 2000
  5. ATORVASTATIN [Concomitant]
     Active Substance: ATORVASTATIN
     Dates: start: 2011
  6. BIMATOPROST\TIMOLOL [Concomitant]
     Active Substance: BIMATOPROST\TIMOLOL
     Dosage: 10.5 MG AND 5 MG
     Dates: start: 2010
  7. CHOLECALCIFEROL [Concomitant]
     Active Substance: CHOLECALCIFEROL
     Dosage: 100000 U/6 MONTHS
     Dates: start: 202008
  8. REPAGLINIDE [Concomitant]
     Active Substance: REPAGLINIDE
     Dates: start: 2021

REACTIONS (2)
  - Scrotal abscess [Recovering/Resolving]
  - Renal disorder [Recovering/Resolving]

NARRATIVE: CASE EVENT DATE: 20211231
